FAERS Safety Report 10442536 (Version 1)
Quarter: 2014Q3

REPORT INFORMATION
  Report Type: Spontaneous
  Country: JP (occurrence: JP)
  Receive Date: 20140909
  Receipt Date: 20140909
  Transmission Date: 20150326
  Serious: No
  Sender: FDA-Public Use
  Company Number: PHHY2014JP114853

PATIENT

DRUGS (2)
  1. TASIGNA [Suspect]
     Active Substance: NILOTINIB
  2. DASATINIB [Suspect]
     Active Substance: DASATINIB

REACTIONS (2)
  - Hepatic function abnormal [Unknown]
  - Pleural effusion [Unknown]
